FAERS Safety Report 8355152-8 (Version None)
Quarter: 2012Q2

REPORT INFORMATION
  Report Type: 
  Country: None (occurrence: None)
  Receive Date: 20120511
  Receipt Date: 20120429
  Transmission Date: 20120825
  Serious: Yes (Other)
  Sender: FDA-Public Use
  Company Number: CHPA2012US010105

PATIENT
  Age: 51 Year
  Sex: Female

DRUGS (6)
  1. DECONGESTANTS AND ANTIALLERGICS [Concomitant]
     Indication: NASAL CONGESTION
     Dosage: UNK, UNK
     Route: 048
  2. BENADRYL [Concomitant]
     Indication: MULTIPLE ALLERGIES
     Dosage: UNK, UNK
     Route: 048
  3. 4 WAY MENTHOLATED NASAL SPRAY [Suspect]
     Indication: NASAL CONGESTION
     Dosage: UNK, QH
     Route: 045
     Dates: start: 19840101
  4. 4 WAY MENTHOLATED NASAL SPRAY [Suspect]
     Dosage: UNK, BID
     Route: 045
  5. AFRIN [Concomitant]
     Indication: NASAL CONGESTION
     Dosage: UNK, UNK
     Route: 045
  6. AMBIEN [Concomitant]
     Indication: INSOMNIA
     Dosage: UNK, UNK
     Route: 048

REACTIONS (5)
  - PNEUMONIA [None]
  - DISEASE RECURRENCE [None]
  - DEPRESSION [None]
  - INCORRECT DRUG ADMINISTRATION DURATION [None]
  - OVERDOSE [None]
